FAERS Safety Report 24270939 (Version 2)
Quarter: 2024Q3

REPORT INFORMATION
  Report Type: Spontaneous
  Country: JP (occurrence: JP)
  Receive Date: 20240831
  Receipt Date: 20240921
  Transmission Date: 20241017
  Serious: Yes (Death, Other)
  Sender: UNITED THERAPEUTICS
  Company Number: JP-UNITED THERAPEUTICS-UNT-2024-027220

PATIENT
  Age: 51 Year
  Sex: Male

DRUGS (1)
  1. TYVASO [Suspect]
     Active Substance: TREPROSTINIL
     Indication: Product used for unknown indication
     Dosage: UNK

REACTIONS (3)
  - Interstitial lung disease [Fatal]
  - Pulmonary hypertension [Fatal]
  - Hypoxia [Fatal]

NARRATIVE: CASE EVENT DATE: 20240826
